FAERS Safety Report 16306455 (Version 1)
Quarter: 2019Q2

REPORT INFORMATION
  Report Type: Spontaneous
  Country: FR (occurrence: FR)
  Receive Date: 20190513
  Receipt Date: 20190513
  Transmission Date: 20190711
  Serious: Yes (Other)
  Sender: FDA-Public Use
  Company Number: FR-PFIZER INC-2019195616

PATIENT
  Age: 69 Year
  Sex: Male
  Weight: 77 kg

DRUGS (13)
  1. ZELITREX [Concomitant]
     Active Substance: VALACYCLOVIR HYDROCHLORIDE
     Dosage: 1 DF, 1X/DAY
  2. WELLVONE [Concomitant]
     Active Substance: ATOVAQUONE
     Dosage: 2 DF, 1X/DAY
  3. TIMOPTOL [Concomitant]
     Active Substance: TIMOLOL
     Dosage: UNK
  4. INEXIUM [ESOMEPRAZOLE MAGNESIUM] [Concomitant]
     Active Substance: ESOMEPRAZOLE MAGNESIUM
     Dosage: UNK
  5. REVOLADE [Concomitant]
     Active Substance: ELTROMBOPAG
     Dosage: 225 MG, 1X/DAY
  6. MAGNE B6 [Concomitant]
     Active Substance: MAGNESIUM\PYRIDOXINE
     Dosage: UNK
  7. INSPRA [Suspect]
     Active Substance: EPLERENONE
     Indication: CHORIORETINITIS
     Dosage: 50 MG, 1X/DAY
     Route: 048
     Dates: start: 201802, end: 201808
  8. MODIGRAF [Suspect]
     Active Substance: TACROLIMUS
     Indication: APLASTIC ANAEMIA
     Dosage: 1.6 MG, 1X/DAY
     Route: 048
     Dates: start: 2017
  9. ADOPORT [Suspect]
     Active Substance: TACROLIMUS
     Indication: APLASTIC ANAEMIA
     Dosage: 2 DF, 1X/DAY
     Route: 048
     Dates: start: 2017
  10. EXJADE [Suspect]
     Active Substance: DEFERASIROX
     Dosage: 3 DF, 1X/DAY
  11. MECIR [Concomitant]
     Active Substance: TAMSULOSIN HYDROCHLORIDE
     Dosage: UNK
  12. FOLIC ACID ARROW [Concomitant]
     Active Substance: FOLIC ACID
     Dosage: UNK
  13. ORACILLINE [PHENOXYMETHYLPENICILLIN] [Concomitant]
     Active Substance: PENICILLIN V
     Dosage: UNK

REACTIONS (2)
  - Product use in unapproved indication [Unknown]
  - Renal failure [Not Recovered/Not Resolved]

NARRATIVE: CASE EVENT DATE: 201802
